FAERS Safety Report 22041870 (Version 1)
Quarter: 2023Q1

REPORT INFORMATION
  Report Type: Spontaneous
  Country: US (occurrence: US)
  Receive Date: 20230227
  Receipt Date: 20230227
  Transmission Date: 20230418
  Serious: No
  Sender: FDA-Public Use
  Company Number: US-MYLANLABS-2023M1018092

PATIENT
  Sex: Female
  Weight: 69.4 kg

DRUGS (2)
  1. AZELASTINE HYDROCHLORIDE\FLUTICASONE PROPIONATE [Suspect]
     Active Substance: AZELASTINE HYDROCHLORIDE\FLUTICASONE PROPIONATE
     Indication: Rhinitis allergic
     Dosage: UNK, 137/50 MICROGRAM 1 SPRAY IN EACH NOSTRIL ONCE A DAY
     Route: 045
  2. TYLENOL [Concomitant]
     Active Substance: ACETAMINOPHEN
     Indication: Insomnia
     Dosage: UNK, AT LEAST ONCE A MONTH
     Route: 065

REACTIONS (2)
  - Dysgeusia [Unknown]
  - Intentional product misuse [Unknown]
